FAERS Safety Report 7755698-7 (Version None)
Quarter: 2011Q3

REPORT INFORMATION
  Report Type: 
  Country: None (occurrence: None)
  Receive Date: 20110916
  Receipt Date: 20110902
  Transmission Date: 20111222
  Serious: Yes (Other)
  Sender: FDA-Public Use
  Company Number: PHHY2011BE79561

PATIENT
  Age: 53 Year

DRUGS (4)
  1. METHYSERGIDE MALEATE [Suspect]
     Dosage: 4 MG, UNK
  2. METHYSERGIDE MALEATE [Suspect]
     Dosage: 8 MG, UNK
  3. LITHIUM CARBONATE [Concomitant]
     Dosage: 1000 MG, UNK
  4. VERPAMIL HCL [Concomitant]
     Dosage: 600 MG, UNK

REACTIONS (1)
  - PARAESTHESIA [None]
